FAERS Safety Report 4312892-5 (Version None)
Quarter: 2004Q1

REPORT INFORMATION
  Report Type: 
  Country: None (occurrence: None)
  Receive Date: 20040303
  Receipt Date: 20040219
  Transmission Date: 20041129
  Serious: Yes (Hospitalization)
  Sender: FDA-Public Use
  Company Number: 2004-DE-00843GD

PATIENT
  Age: 65 Year
  Sex: Female

DRUGS (5)
  1. ATROVENT [Suspect]
     Dosage: IH
     Route: 025
  2. DIPHENHYDRAMINE (DIPHENHYDRAMINE) (NR) [Suspect]
  3. FUROSEMIDE (FUROSEMIDE) (NR) (FUROSEMIDE) [Suspect]
  4. CELECOXIB (CELECOXIB) (NR) [Suspect]
  5. FLUOXETINE [Suspect]

REACTIONS (12)
  - DECREASED APPETITE [None]
  - DEHYDRATION [None]
  - ELECTROENCEPHALOGRAM ABNORMAL [None]
  - EXERCISE CAPACITY DECREASED [None]
  - HEMIPARESIS [None]
  - MUCOSAL DRYNESS [None]
  - NORMOCHROMIC NORMOCYTIC ANAEMIA [None]
  - PLEURITIC PAIN [None]
  - RENAL FAILURE ACUTE [None]
  - TACHYCARDIA [None]
  - TUBULOINTERSTITIAL NEPHRITIS [None]
  - UVEITIS [None]
